FAERS Safety Report 9690570 (Version 1)
Quarter: 2013Q4

REPORT INFORMATION
  Report Type: Spontaneous
  Country: US (occurrence: None)
  Receive Date: 20131114
  Receipt Date: 20131114
  Transmission Date: 20140711
  Serious: Yes (Hospitalization)
  Sender: FDA-Public Use
  Company Number: None

PATIENT
  Age: 45 Year
  Sex: Female
  Weight: 133 kg

DRUGS (6)
  1. XARELTO [Suspect]
     Indication: DEEP VEIN THROMBOSIS
     Route: 048
     Dates: start: 20131106, end: 20131112
  2. XARELTO [Suspect]
     Indication: PULMONARY EMBOLISM
     Route: 048
     Dates: start: 20131106, end: 20131112
  3. PRINZIDE [Concomitant]
  4. IBUPROFEN [Concomitant]
  5. ALBUTEROL INHALER [Concomitant]
  6. NORCO [Concomitant]

REACTIONS (1)
  - Pulmonary embolism [None]
